FAERS Safety Report 6338964-1 (Version None)
Quarter: 2009Q3

REPORT INFORMATION
  Report Type: 
  Country: None (occurrence: None)
  Receive Date: 20090903
  Receipt Date: 20090803
  Transmission Date: 20100115
  Serious: No
  Sender: FDA-Public Use
  Company Number: US-BAYER-200920400NA

PATIENT
  Age: 20 Year
  Sex: Female

DRUGS (1)
  1. CIPRO [Suspect]
     Indication: SINUSITIS
     Dates: start: 20090506

REACTIONS (3)
  - FEELING ABNORMAL [None]
  - JOINT SWELLING [None]
  - SWOLLEN TONGUE [None]
